FAERS Safety Report 25888173 (Version 1)
Quarter: 2025Q4

REPORT INFORMATION
  Report Type: Spontaneous
  Country: US (occurrence: US)
  Receive Date: 20251007
  Receipt Date: 20251007
  Transmission Date: 20260118
  Serious: Yes (Death, Hospitalization)
  Sender: SHILPA MEDICARE
  Company Number: US-KOANAAP-SML-US-2025-00495

PATIENT
  Age: 17 Year
  Sex: Female
  Weight: 54 kg

DRUGS (3)
  1. GEMCITABINE [Suspect]
     Active Substance: GEMCITABINE
     Indication: Angiosarcoma
     Dosage: 1000 MG IN 100 ML VIA IV DRIP ONCE DAILY FOR 15 DAYS.
     Route: 041
  2. PACLITAXEL [Suspect]
     Active Substance: PACLITAXEL
     Indication: Angiosarcoma
     Dosage: FOR 15 DAYS
     Route: 041
  3. PACLITAXEL [Suspect]
     Active Substance: PACLITAXEL
     Dosage: FOR 15 DAYS FOLLOWED BY A TWO-WEEK REST PERIOD (SECOND CYCLE)
     Route: 041

REACTIONS (10)
  - Pneumonia [Fatal]
  - Disease progression [Fatal]
  - Drug ineffective [Fatal]
  - Metastases to bone [Fatal]
  - Metastases to liver [Fatal]
  - Metastases to kidney [Fatal]
  - Respiratory failure [Fatal]
  - Fatigue [Fatal]
  - Anaemia [Fatal]
  - Dyspnoea [Fatal]
